FAERS Safety Report 10246582 (Version 7)
Quarter: 2015Q3

REPORT INFORMATION
  Report Type: Report from Study
  Country: CA (occurrence: CA)
  Receive Date: 20140619
  Receipt Date: 20150716
  Transmission Date: 20151125
  Serious: Yes (Other)
  Sender: FDA-Public Use
  Company Number: CA-ASTRAZENECA-2013SE16169

PATIENT
  Age: 58 Year
  Sex: Female

DRUGS (55)
  1. CAPRELSA [Suspect]
     Active Substance: VANDETANIB
     Indication: MEDULLARY THYROID CANCER
     Route: 048
     Dates: start: 20130315
  2. CAPRELSA [Suspect]
     Active Substance: VANDETANIB
     Indication: MEDULLARY THYROID CANCER
     Route: 048
  3. CAPRELSA [Suspect]
     Active Substance: VANDETANIB
     Indication: MEDULLARY THYROID CANCER
     Route: 048
  4. PROBIOTIC SUPPLIMENT [Concomitant]
  5. MULTIVITAMIN [Concomitant]
     Active Substance: VITAMINS
     Dosage: IRON AND COPPER FREE
  6. EMO CORT [Concomitant]
  7. RELOXA PLEX [Concomitant]
  8. GRAVOL [Concomitant]
     Active Substance: DIMENHYDRINATE
  9. HYDROCORTISONE. [Concomitant]
     Active Substance: HYDROCORTISONE
     Dosage: CREAM 1%
  10. ROCALTROL [Concomitant]
     Active Substance: CALCITRIOL
  11. ADVIL [Concomitant]
     Active Substance: IBUPROFEN
     Indication: PAIN
     Dosage: 400 MG
  12. TYLENOL [Concomitant]
     Active Substance: ACETAMINOPHEN
     Indication: NECK PAIN
     Dosage: 325 MG
  13. IMODIUM [Concomitant]
     Active Substance: LOPERAMIDE HYDROCHLORIDE
     Indication: DIARRHOEA
     Dosage: AS REQUIRED
  14. R-ALPHA LIPOIC ACID [Concomitant]
  15. REJUVENATE [Concomitant]
  16. BENADRYL [Concomitant]
     Active Substance: DIPHENHYDRAMINE HYDROCHLORIDE
     Dosage: 25 MG AT NIGHT AS REQUIRED
     Route: 048
  17. SUPRAX [Concomitant]
     Active Substance: CEFIXIME
     Route: 048
  18. CAPRELSA [Suspect]
     Active Substance: VANDETANIB
     Indication: MEDULLARY THYROID CANCER
     Route: 048
     Dates: start: 20131213
  19. ROCALTROL [Concomitant]
     Active Substance: CALCITRIOL
  20. SYNTHROID [Concomitant]
     Active Substance: LEVOTHYROXINE SODIUM
  21. SYNTHROID [Concomitant]
     Active Substance: LEVOTHYROXINE SODIUM
  22. ADVIL [Concomitant]
     Active Substance: IBUPROFEN
     Indication: PAIN
     Dosage: AS REQUIRED
  23. TYLENOL [Concomitant]
     Active Substance: ACETAMINOPHEN
     Indication: NECK PAIN
     Dosage: AS REQUIRED
  24. TYLENOL [Concomitant]
     Active Substance: ACETAMINOPHEN
     Indication: ANALGESIC THERAPY
     Dosage: AS REQUIRED
  25. VITAMIN BONE THERAPY [Concomitant]
  26. UTI CLEANSER [Concomitant]
  27. DITROPAN [Concomitant]
     Active Substance: OXYBUTYNIN CHLORIDE
  28. CAPRELSA [Suspect]
     Active Substance: VANDETANIB
     Indication: MEDULLARY THYROID CANCER
     Route: 048
     Dates: start: 20130216
  29. CAPRELSA [Suspect]
     Active Substance: VANDETANIB
     Indication: MEDULLARY THYROID CANCER
     Route: 048
     Dates: start: 20130216, end: 20150701
  30. MACROBID [Concomitant]
     Active Substance: NITROFURANTOIN\NITROFURANTOIN MONOHYDRATE
     Indication: CYSTITIS
  31. MACROBID [Concomitant]
     Active Substance: NITROFURANTOIN\NITROFURANTOIN MONOHYDRATE
     Indication: CYSTITIS
     Dosage: X5 DAYS
  32. CAPRELSA [Suspect]
     Active Substance: VANDETANIB
     Indication: MEDULLARY THYROID CANCER
     Route: 048
     Dates: start: 20130325, end: 20130406
  33. CAPRELSA [Suspect]
     Active Substance: VANDETANIB
     Indication: MEDULLARY THYROID CANCER
     Route: 048
     Dates: start: 20130418, end: 20130422
  34. CAPRELSA [Suspect]
     Active Substance: VANDETANIB
     Indication: MEDULLARY THYROID CANCER
     Route: 048
     Dates: start: 20130422, end: 20130429
  35. AHCC [Concomitant]
  36. PERMA-CLEAR [Concomitant]
  37. BETAMETHASONE VALTRATE [Concomitant]
  38. CRANBERRY JUICE [Concomitant]
     Active Substance: CRANBERRY JUICE
  39. CAPRELSA [Suspect]
     Active Substance: VANDETANIB
     Indication: MEDULLARY THYROID CANCER
     Route: 048
     Dates: start: 20130301
  40. CAPRELSA [Suspect]
     Active Substance: VANDETANIB
     Indication: MEDULLARY THYROID CANCER
     Route: 048
     Dates: start: 20130311
  41. TYLENOL [Concomitant]
     Active Substance: ACETAMINOPHEN
     Indication: ANALGESIC THERAPY
     Dosage: 325 MG
  42. OMNARIS [Concomitant]
     Active Substance: CICLESONIDE
     Route: 045
  43. PROBIOTIC SUPPLEMENT [Concomitant]
  44. CAPRELSA [Suspect]
     Active Substance: VANDETANIB
     Indication: MEDULLARY THYROID CANCER
     Route: 048
     Dates: start: 20130429
  45. SANDOSTATIN [Concomitant]
     Active Substance: OCTREOTIDE ACETATE
     Route: 042
  46. DIMENHYDRINATE. [Concomitant]
     Active Substance: DIMENHYDRINATE
     Dosage: AS REQUIRED
  47. CIPROFLOXACIN. [Concomitant]
     Active Substance: CIPROFLOXACIN
  48. PARACIDE [Concomitant]
  49. ZEN-THEANINE [Concomitant]
  50. OIL OF OREGANO [Concomitant]
  51. MACRIBID [Concomitant]
     Route: 048
  52. MACROBID [Concomitant]
     Active Substance: NITROFURANTOIN\NITROFURANTOIN MONOHYDRATE
     Indication: CYSTITIS
     Dosage: 100 MG BID FOR 7 DAYS
     Route: 048
     Dates: start: 20130628, end: 20130705
  53. PELO-FORTEO [Concomitant]
  54. VITAL 10 [Concomitant]
  55. BETAMETHASONE VALERATE. [Concomitant]
     Active Substance: BETAMETHASONE VALERATE
     Dosage: 0.1%

REACTIONS (50)
  - Photosensitivity reaction [Not Recovered/Not Resolved]
  - Abdominal pain upper [Unknown]
  - Urinary tract infection [Not Recovered/Not Resolved]
  - Chills [Not Recovered/Not Resolved]
  - Arthritis [Unknown]
  - Dry throat [Recovered/Resolved]
  - Dry eye [Not Recovered/Not Resolved]
  - Rash maculo-papular [Not Recovered/Not Resolved]
  - Abdominal distension [Recovered/Resolved]
  - Flatulence [Not Recovered/Not Resolved]
  - Hypoaesthesia [Unknown]
  - Rash pruritic [Not Recovered/Not Resolved]
  - Vision blurred [Not Recovered/Not Resolved]
  - Injection site pain [Unknown]
  - Dry mouth [Not Recovered/Not Resolved]
  - Muscle contusion [Not Recovered/Not Resolved]
  - Nasal dryness [Recovered/Resolved]
  - Dyspnoea [Recovered/Resolved]
  - Fall [Not Recovered/Not Resolved]
  - Movement disorder [Not Recovered/Not Resolved]
  - Diarrhoea [Not Recovered/Not Resolved]
  - Blood urine present [Unknown]
  - Vertigo [Not Recovered/Not Resolved]
  - Arthralgia [Unknown]
  - Pain [Not Recovered/Not Resolved]
  - Cystitis [Not Recovered/Not Resolved]
  - Muscle spasms [Recovered/Resolved]
  - Arthralgia [Unknown]
  - Gait disturbance [Unknown]
  - Joint swelling [Unknown]
  - Increased upper airway secretion [Recovered/Resolved]
  - Alopecia [Not Recovered/Not Resolved]
  - Cough [Not Recovered/Not Resolved]
  - Rash generalised [Not Recovered/Not Resolved]
  - Depression [Not Recovered/Not Resolved]
  - Muscle swelling [Unknown]
  - Dermatitis acneiform [Not Recovered/Not Resolved]
  - Back pain [Not Recovered/Not Resolved]
  - Dizziness postural [Not Recovered/Not Resolved]
  - Nausea [Unknown]
  - Fibromyalgia [Unknown]
  - Influenza [Not Recovered/Not Resolved]
  - Hyperhidrosis [Unknown]
  - Pallor [Unknown]
  - Blister [Not Recovered/Not Resolved]
  - Fatigue [Not Recovered/Not Resolved]
  - Pulmonary congestion [Recovered/Resolved]
  - Drooling [Not Recovered/Not Resolved]
  - Arthritis [Recovering/Resolving]
  - Drug dose omission [Unknown]

NARRATIVE: CASE EVENT DATE: 20130228
